FAERS Safety Report 6815265-6 (Version None)
Quarter: 2010Q3

REPORT INFORMATION
  Report Type: 
  Country: None (occurrence: None)
  Receive Date: 20100702
  Receipt Date: 20100622
  Transmission Date: 20110219
  Serious: Yes (Hospitalization, Disabling)
  Sender: FDA-Public Use
  Company Number: GB-JNJFOC-20100607293

PATIENT
  Age: 42 Year
  Sex: Male
  Weight: 110 kg

DRUGS (14)
  1. REMICADE [Suspect]
     Indication: ANKYLOSING SPONDYLITIS
     Route: 042
  2. ACETAMINOPHEN AND CODEINE PHOSPHATE [Concomitant]
     Route: 065
  3. METHOTREXATE [Concomitant]
     Indication: ANKYLOSING SPONDYLITIS
     Route: 048
  4. AMITRIPTYLINE [Concomitant]
     Indication: PAIN
     Route: 048
  5. AMLODIPINE [Concomitant]
     Route: 065
  6. BUPRENORPHINE [Concomitant]
     Route: 062
  7. CETIRIZINE HCL [Concomitant]
     Indication: ANGIOEDEMA
     Route: 048
  8. ETORICOXIB [Concomitant]
     Indication: ANKYLOSING SPONDYLITIS
     Route: 048
  9. ORAMORPH SR [Concomitant]
     Route: 065
  10. RAMIPRIL [Concomitant]
     Route: 065
  11. SENNA [Concomitant]
     Route: 065
  12. SERETIDE [Concomitant]
     Route: 055
  13. TRANEXAMIC ACID [Concomitant]
     Route: 065
  14. VENTOLIN [Concomitant]
     Route: 055

REACTIONS (4)
  - ANAESTHESIA [None]
  - DYSURIA [None]
  - MUSCULAR WEAKNESS [None]
  - PERONEAL NERVE PALSY [None]
